FAERS Safety Report 5748526-2 (Version None)
Quarter: 2008Q2

REPORT INFORMATION
  Report Type: 
  Country: None (occurrence: None)
  Receive Date: 20080523
  Receipt Date: 20080512
  Transmission Date: 20081010
  Serious: Yes (Other)
  Sender: FDA-Public Use
  Company Number: US-PFIZER INC-2008041928

PATIENT
  Sex: Male
  Weight: 79.4 kg

DRUGS (16)
  1. DILANTIN [Suspect]
     Indication: CONVULSION
  2. LAMICTAL [Suspect]
  3. CALCIUM WITH VITAMIN D [Concomitant]
  4. VITAMINS [Concomitant]
  5. ACETAMINOPHEN AND OXYCODONE HCL [Concomitant]
  6. NORTRIPTYLINE HCL [Concomitant]
  7. PRAZOSIN HCL [Concomitant]
  8. IBUPROFEN [Concomitant]
  9. BACLOFEN [Concomitant]
  10. FOLIC ACID [Concomitant]
  11. ACETYLSALICYLIC ACID SRT [Concomitant]
  12. OXYBUTYNIN CHLORIDE [Concomitant]
  13. DIAZEPAM [Concomitant]
  14. MECLIZINE [Concomitant]
  15. ALL OTHER THERAPEUTIC PRODUCTS [Concomitant]
  16. SENNOSIDES [Concomitant]

REACTIONS (4)
  - BLOOD TEST ABNORMAL [None]
  - FEELING ABNORMAL [None]
  - GRAND MAL CONVULSION [None]
  - TREMOR [None]
